FAERS Safety Report 7227207-2 (Version None)
Quarter: 2011Q1

REPORT INFORMATION
  Report Type: 
  Country: None (occurrence: None)
  Receive Date: 20110114
  Receipt Date: 20110103
  Transmission Date: 20110831
  Serious: Yes (Hospitalization, Congenital Anomaly)
  Sender: FDA-Public Use
  Company Number: A0680455A

PATIENT
  Sex: Male
  Weight: 3.7 kg

DRUGS (8)
  1. ALLEGRA [Concomitant]
     Dates: start: 20000707, end: 20030101
  2. HALOPERIDOL [Concomitant]
     Dates: start: 19860101, end: 20020101
  3. LORATADINE [Concomitant]
     Dates: start: 20000101, end: 20050101
  4. PAXIL [Suspect]
     Indication: MAJOR DEPRESSION
     Dosage: 20MG PER DAY
     Dates: start: 19980101
  5. INSULIN [Concomitant]
     Dates: start: 20010401, end: 20010601
  6. HUMULIN R [Concomitant]
     Dates: start: 20010401, end: 20010601
  7. HALDOL [Concomitant]
     Dates: start: 19860101, end: 20010101
  8. PRENATAL VITAMINS [Concomitant]

REACTIONS (9)
  - TRANSPOSITION OF THE GREAT VESSELS [None]
  - HYPOPLASTIC LEFT HEART SYNDROME [None]
  - ATRIAL SEPTAL DEFECT [None]
  - DRUG EXPOSURE DURING PREGNANCY [None]
  - LUNG DISORDER [None]
  - HEART DISEASE CONGENITAL [None]
  - CONGENITAL AORTIC ATRESIA [None]
  - WOLFF-PARKINSON-WHITE SYNDROME [None]
  - DEXTROCARDIA [None]
